FAERS Safety Report 17566886 (Version 1)
Quarter: 2020Q1

REPORT INFORMATION
  Report Type: Spontaneous
  Country: DE (occurrence: DE)
  Receive Date: 20200320
  Receipt Date: 20200320
  Transmission Date: 20200409
  Serious: Yes (Other)
  Sender: FDA-Public Use
  Company Number: DE-SA-2020SA068791

PATIENT
  Sex: Female

DRUGS (1)
  1. DUPIXENT [Suspect]
     Active Substance: DUPILUMAB

REACTIONS (7)
  - Heart rate increased [Unknown]
  - Cough [Unknown]
  - Chest discomfort [Unknown]
  - Eosinophil count increased [Unknown]
  - Unevaluable event [Unknown]
  - Paraesthesia [Unknown]
  - Arrhythmia [Unknown]
